FAERS Safety Report 5416757-7 (Version None)
Quarter: 2007Q3

REPORT INFORMATION
  Report Type: 
  Country: None (occurrence: None)
  Receive Date: 20070816
  Receipt Date: 20070807
  Transmission Date: 20080115
  Serious: Yes (Hospitalization)
  Sender: FDA-Public Use
  Company Number: B0483411A

PATIENT
  Age: 3 Year
  Sex: Male
  Weight: 16.5 kg

DRUGS (1)
  1. CHILDREN'S PANADOL COLOURFREE SUSPENSION 5-12 YEARS [Suspect]
     Indication: DRUG USE FOR UNKNOWN INDICATION
     Route: 048
     Dates: start: 20070804, end: 20070804

REACTIONS (1)
  - ACCIDENTAL OVERDOSE [None]
